FAERS Safety Report 18163780 (Version 1)
Quarter: 2020Q3

REPORT INFORMATION
  Report Type: Spontaneous
  Country: US (occurrence: US)
  Receive Date: 20200818
  Receipt Date: 20200818
  Transmission Date: 20201103
  Serious: No
  Sender: FDA-Public Use
  Company Number: US-CADILA HEALTHCARE LIMITED-US-ZYDUS-051501

PATIENT
  Sex: Male

DRUGS (1)
  1. MESALAMINE 800 MILLIGRAM TABLET [Suspect]
     Active Substance: MESALAMINE
     Indication: CROHN^S DISEASE
     Dosage: 800 MILLIGRAM, TID
     Route: 048
     Dates: start: 202003

REACTIONS (4)
  - Flatulence [Unknown]
  - Diarrhoea [Unknown]
  - Abdominal pain upper [Unknown]
  - Product use in unapproved indication [Not Recovered/Not Resolved]

NARRATIVE: CASE EVENT DATE: 202003
